FAERS Safety Report 4527523-9 (Version None)
Quarter: 2004Q4

REPORT INFORMATION
  Report Type: 
  Country: None (occurrence: None)
  Receive Date: 20041123
  Receipt Date: 20040617
  Transmission Date: 20050328
  Serious: Yes (Hospitalization, Other)
  Sender: FDA-Public Use
  Company Number: 2004041116

PATIENT
  Age: 56 Year
  Sex: Male
  Weight: 104.7809 kg

DRUGS (1)
  1. LIPITOR [Suspect]
     Indication: ILL-DEFINED DISORDER
     Dosage: 10 MG (10 M, 1 IN 1 D), ORAL
     Route: 048
     Dates: end: 20040614

REACTIONS (1)
  - IDIOPATHIC THROMBOCYTOPENIC PURPURA [None]
